FAERS Safety Report 9360883 (Version 1)
Quarter: 2013Q2

REPORT INFORMATION
  Report Type: Spontaneous
  Country: IT (occurrence: IT)
  Receive Date: 20130621
  Receipt Date: 20130621
  Transmission Date: 20140414
  Serious: Yes (Hospitalization, Other)
  Sender: FDA-Public Use
  Company Number: IT-PFIZER INC-2013185103

PATIENT
  Age: 81 Year
  Sex: Female

DRUGS (10)
  1. CORDARONE [Suspect]
     Indication: TACHYCARDIA
     Dosage: UNK
     Route: 048
     Dates: start: 20110207, end: 20121003
  2. SIMVASTATIN [Concomitant]
     Dosage: UNK
  3. THIAMAZOLE [Concomitant]
     Dosage: UNK
  4. ZOLPIDEM [Concomitant]
     Dosage: UNK
  5. TIOTROPIUM BROMIDE [Concomitant]
     Dosage: UNK
  6. RAMIPRIL [Concomitant]
     Dosage: UNK
  7. CLOPIDOGREL [Concomitant]
     Dosage: UNK
  8. ASA [Concomitant]
  9. ACETYLCYSTEINE [Concomitant]
     Dosage: UNK
  10. RANITIDINE [Concomitant]
     Dosage: UNK

REACTIONS (2)
  - Interstitial lung disease [Recovering/Resolving]
  - Embolic stroke [Unknown]
